FAERS Safety Report 8836034 (Version 2)
Quarter: 2015Q1

REPORT INFORMATION
  Report Type: Report from Study
  Country: US (occurrence: US)
  Receive Date: 20121011
  Receipt Date: 20150109
  Transmission Date: 20150721
  Serious: Yes (Life-Threatening, Hospitalization)
  Sender: FDA-Public Use
  Company Number: US-009507513-1010USA00475

PATIENT
  Age: 52 Year
  Sex: Male
  Weight: 101.3 kg

DRUGS (3)
  1. HEXADROL [Suspect]
     Active Substance: DEXAMETHASONE
     Dosage: DAY 1,2,3,4,8,9,11,12 PER CYCLE
     Route: 048
     Dates: start: 20100913, end: 20101105
  2. VELCADE [Suspect]
     Active Substance: BORTEZOMIB
     Indication: PLASMA CELL MYELOMA
     Dosage: DAYS 1,4,8,11 PER CYCLE
     Route: 040
     Dates: start: 20100913, end: 20101105
  3. THALIDOMIDE [Suspect]
     Active Substance: THALIDOMIDE
     Indication: PLASMA CELL MYELOMA
     Dosage: QD 1-21 PER CYCLE
     Route: 048
     Dates: start: 20100913, end: 20100923

REACTIONS (9)
  - Diarrhoea [Unknown]
  - Pneumonia [Recovered/Resolved]
  - Vomiting [Unknown]
  - Diarrhoea haemorrhagic [Unknown]
  - Pain in extremity [Unknown]
  - Hypotension [Unknown]
  - Anaemia [Unknown]
  - Asthenia [Unknown]
  - Haematochezia [Unknown]

NARRATIVE: CASE EVENT DATE: 20100924
